FAERS Safety Report 18427302 (Version 1)
Quarter: 2020Q4

REPORT INFORMATION
  Report Type: Spontaneous
  Country: US (occurrence: US)
  Receive Date: 20201026
  Receipt Date: 20201026
  Transmission Date: 20210114
  Serious: Yes (Other)
  Sender: FDA-Public Use
  Company Number: US-SUPERNUS PHARMACEUTICALS, INC.-2020SUP00412

PATIENT

DRUGS (2)
  1. POTASSIUM CITRATE. [Suspect]
     Active Substance: POTASSIUM CITRATE
  2. TROKENDI XR [Suspect]
     Active Substance: TOPIRAMATE

REACTIONS (2)
  - Seizure [Unknown]
  - Drug interaction [Unknown]
